FAERS Safety Report 21003654 (Version 9)
Quarter: 2023Q1

REPORT INFORMATION
  Report Type: Report from Study
  Country: CA (occurrence: CA)
  Receive Date: 20220624
  Receipt Date: 20230127
  Transmission Date: 20230418
  Serious: Yes (Other)
  Sender: FDA-Public Use
  Company Number: CA-TAKEDA-2022TUS041493

PATIENT
  Age: 49 Year
  Sex: Female

DRUGS (6)
  1. VEDOLIZUMAB [Suspect]
     Active Substance: VEDOLIZUMAB
     Indication: Colitis ulcerative
     Dosage: 300 MILLIGRAM
     Route: 042
     Dates: start: 20210729
  2. VEDOLIZUMAB [Suspect]
     Active Substance: VEDOLIZUMAB
     Dosage: 300 MILLIGRAM, Q4WEEKS
     Route: 042
     Dates: start: 20220909
  3. Cortiment [Concomitant]
     Dosage: 9 MILLIGRAM, QD
     Route: 048
  4. IRON [Concomitant]
     Active Substance: IRON
     Indication: Iron deficiency anaemia
     Dosage: UNK
     Route: 042
  5. IRON [Concomitant]
     Active Substance: IRON
     Indication: Mineral supplementation
  6. PERINDOPRIL [Concomitant]
     Active Substance: PERINDOPRIL
     Dosage: UNK

REACTIONS (6)
  - Colitis ulcerative [Not Recovered/Not Resolved]
  - Gastrointestinal inflammation [Unknown]
  - Illness [Unknown]
  - Abdominal discomfort [Unknown]
  - Nausea [Unknown]
  - Off label use [Unknown]

NARRATIVE: CASE EVENT DATE: 20220909
